FAERS Safety Report 9240376 (Version 1)
Quarter: 2013Q1

REPORT INFORMATION
  Report Type: Spontaneous
  Country: US (occurrence: None)
  Receive Date: 20121107
  Receipt Date: 20121107
  Transmission Date: 20140127
  Serious: Yes (Hospitalization)
  Sender: FDA-Public Use
  Company Number: 2012HGS-003898

PATIENT
  Age: 44 Year
  Sex: Male

DRUGS (11)
  1. BENLYSTA [Suspect]
     Dosage: 1 IN 28 D, INTRAVENOUS DRIP
     Route: 041
     Dates: start: 20120716
  2. PLAQUENIL (HYDROXYCHLOROQUINE PHOSPHATE) (HYDROXYCHLOROQUINE PHOSPHATE) [Concomitant]
  3. CELLCEPT (MYCOPHENOLATE MOFETIL) (MYCOPHENOLATE MOFETIL) [Concomitant]
  4. ASPIRIN (ACETYLSALICYLIC ACID) (ACETYLSALICYLIC ACID) [Concomitant]
  5. ALTACE (RAMIPRIL) (RAMIPRIL) [Concomitant]
  6. SYNTHROID (LEVOTHYROXINE SODIUM) (LEVOTHYROXINE SODIUM) [Concomitant]
  7. LASIX (FUROSEMIDE) (FUROSEMIDE) [Concomitant]
  8. DELTASONE (PREDNISONE) (PREDNISONE) [Concomitant]
  9. COLESTID (COLESTIPOL HYDROCHLORIDE) (COLESTIPOL HYDROCHLORIDE) [Concomitant]
  10. INDERAL (PROPRANOLOL HYDROCHLORIDE) (PROPRANOLOL HYDROCHLORIDE) [Concomitant]
  11. ALDACTONE (SPIRONOLACTONE) (SPIRONOLACTONE) [Concomitant]

REACTIONS (2)
  - Infection [None]
  - Pyrexia [None]
